FAERS Safety Report 14433675 (Version 1)
Quarter: 2018Q1

REPORT INFORMATION
  Report Type: Spontaneous
  Country: JP (occurrence: JP)
  Receive Date: 20180124
  Receipt Date: 20180124
  Transmission Date: 20180509
  Serious: Yes (Hospitalization)
  Sender: FDA-Public Use
  Company Number: JP-GLAXOSMITHKLINE-JP2017JPN039284

PATIENT
  Age: 33 Year
  Sex: Female

DRUGS (2)
  1. LAMICTAL [Suspect]
     Active Substance: LAMOTRIGINE
     Indication: EPILEPSY
     Dosage: 25 MG, QD
     Route: 048
     Dates: start: 20170114, end: 20170131
  2. TEGRETOL [Concomitant]
     Active Substance: CARBAMAZEPINE
     Dosage: 300 MG, 1D

REACTIONS (14)
  - Erythema [Recovering/Resolving]
  - Pruritus [Recovering/Resolving]
  - Lip erosion [Recovering/Resolving]
  - Dehydration [Recovering/Resolving]
  - Pigmentation disorder [Unknown]
  - Drug eruption [Recovering/Resolving]
  - Skin irritation [Recovering/Resolving]
  - Decreased appetite [Recovering/Resolving]
  - Ocular hyperaemia [Recovering/Resolving]
  - Urinary tract infection [Recovering/Resolving]
  - Pyrexia [Recovering/Resolving]
  - Lip dry [Recovering/Resolving]
  - Rash [Recovered/Resolved]
  - Headache [Recovering/Resolving]

NARRATIVE: CASE EVENT DATE: 2017
